FAERS Safety Report 12742438 (Version 1)
Quarter: 2016Q3

REPORT INFORMATION
  Report Type: Spontaneous
  Country: US (occurrence: US)
  Receive Date: 20160913
  Receipt Date: 20160913
  Transmission Date: 20161109
  Serious: Yes (Hospitalization)
  Sender: FDA-Public Use
  Company Number: None

PATIENT
  Age: 58 Year
  Sex: Male
  Weight: 73.4 kg

DRUGS (1)
  1. PRAZOSIN [Suspect]
     Active Substance: PRAZOSIN
     Indication: POST-TRAUMATIC STRESS DISORDER
     Route: 048
     Dates: start: 20151218, end: 20160114

REACTIONS (11)
  - Loss of consciousness [None]
  - Urticaria [None]
  - Dyspnoea [None]
  - Cold sweat [None]
  - Sedation [None]
  - Hyporeflexia [None]
  - Respiratory depression [None]
  - Headache [None]
  - Syncope [None]
  - Pruritus [None]
  - Hypotension [None]

NARRATIVE: CASE EVENT DATE: 20160114
